FAERS Safety Report 8515528-2 (Version None)
Quarter: 2012Q3

REPORT INFORMATION
  Report Type: 
  Country: None (occurrence: None)
  Receive Date: 20120717
  Receipt Date: 20120704
  Transmission Date: 20120928
  Serious: Yes (Hospitalization)
  Sender: FDA-Public Use
  Company Number: NO-JNJFOC-20120702297

PATIENT
  Sex: Male

DRUGS (3)
  1. AMITRIPTYLINE HCL [Concomitant]
     Indication: HEADACHE
     Route: 048
  2. HALDOL [Suspect]
     Indication: AGITATION
     Route: 065
     Dates: start: 20120623, end: 20120624
  3. DIAZEPAM [Suspect]
     Indication: AGITATION
     Route: 065
     Dates: start: 20120623, end: 20120624

REACTIONS (7)
  - SWELLING FACE [None]
  - TACHYCARDIA [None]
  - BLOOD CREATINE PHOSPHOKINASE INCREASED [None]
  - LIP SWELLING [None]
  - DYSTONIA [None]
  - MUSCLE CONTRACTIONS INVOLUNTARY [None]
  - TREMOR [None]
